FAERS Safety Report 10215655 (Version 1)
Quarter: 2014Q2

REPORT INFORMATION
  Report Type: Spontaneous
  Country: US (occurrence: US)
  Receive Date: 20140604
  Receipt Date: 20140604
  Transmission Date: 20141212
  Serious: No
  Sender: FDA-Public Use
  Company Number: US-ASTRAZENECA-2014SE35896

PATIENT
  Age: 86 Year
  Sex: Female
  Weight: 56.2 kg

DRUGS (5)
  1. NEXIUM [Suspect]
     Indication: GASTROOESOPHAGEAL REFLUX DISEASE
     Route: 048
     Dates: start: 2001
  2. IRON [Suspect]
     Route: 030
  3. ASPIRIN [Concomitant]
     Indication: PROPHYLAXIS
     Route: 048
  4. IBUPROFEN [Concomitant]
     Indication: ARTHRALGIA
     Dosage: UNKNOWN PRN
     Route: 048
  5. TYLENOL [Concomitant]
     Route: 048

REACTIONS (8)
  - Anaemia [Unknown]
  - Gastrooesophageal reflux disease [Unknown]
  - Fall [Unknown]
  - Head injury [Unknown]
  - Constipation [Unknown]
  - Paraesthesia [Unknown]
  - Erythema [Unknown]
  - Intentional product misuse [Unknown]
